FAERS Safety Report 6294983-5 (Version None)
Quarter: 2009Q3

REPORT INFORMATION
  Report Type: 
  Country: None (occurrence: None)
  Receive Date: 20090803
  Receipt Date: 20090723
  Transmission Date: 20100115
  Serious: Yes (Disabling)
  Sender: FDA-Public Use
  Company Number: JP-MERCK-0812USA01542

PATIENT
  Age: 76 Year
  Sex: Male

DRUGS (2)
  1. ZETIA [Suspect]
     Indication: DYSLIPIDAEMIA
     Route: 048
     Dates: start: 20080731, end: 20080909
  2. CRESTOR [Suspect]
     Indication: DYSLIPIDAEMIA
     Route: 048
     Dates: start: 20080626, end: 20080731

REACTIONS (3)
  - INCLUSION BODY MYOSITIS [None]
  - MYOSITIS-LIKE SYNDROME [None]
  - PARANEOPLASTIC SYNDROME [None]
